FAERS Safety Report 5833204-1 (Version None)
Quarter: 2008Q3

REPORT INFORMATION
  Report Type: 
  Country: None (occurrence: None)
  Receive Date: 20080722
  Receipt Date: 20071001
  Transmission Date: 20090109
  Serious: Yes (Hospitalization, Other)
  Sender: FDA-Public Use
  Company Number: 2006BI013382

PATIENT
  Age: 41 Year
  Sex: Female
  Weight: 78.0187 kg

DRUGS (8)
  1. AVONEX [Suspect]
     Indication: PRIMARY PROGRESSIVE MULTIPLE SCLEROSIS
     Dosage: 30 UG;QW;IM
     Route: 030
     Dates: start: 20051213, end: 20060702
  2. AVONEX [Suspect]
     Indication: PRIMARY PROGRESSIVE MULTIPLE SCLEROSIS
     Dosage: 30 UG;QW;IM
     Route: 030
     Dates: start: 20060730, end: 20060901
  3. NEURONTIN [Concomitant]
  4. LEXAPRO [Concomitant]
  5. PAXIL [Concomitant]
  6. CALCIUM [Concomitant]
  7. VITAMIN B [Concomitant]
  8. XANAX [Concomitant]

REACTIONS (14)
  - ABORTION SPONTANEOUS [None]
  - ANXIETY [None]
  - COGNITIVE DISORDER [None]
  - DISORIENTATION [None]
  - FEELING COLD [None]
  - HEMIPARESIS [None]
  - HYPERAESTHESIA [None]
  - HYPERPATHIA [None]
  - LOSS OF CONTROL OF LEGS [None]
  - MEMORY IMPAIRMENT [None]
  - MULTIPLE SCLEROSIS RELAPSE [None]
  - PAIN IN EXTREMITY [None]
  - URINARY INCONTINENCE [None]
  - VIBRATION TEST ABNORMAL [None]
